FAERS Safety Report 9493703 (Version 1)
Quarter: 2013Q3

REPORT INFORMATION
  Report Type: Spontaneous
  Country: GB (occurrence: GB)
  Receive Date: 20130902
  Receipt Date: 20130902
  Transmission Date: 20140515
  Serious: Yes (Other)
  Sender: FDA-Public Use
  Company Number: GB-JNJFOC-20130809387

PATIENT
  Age: 80 Year
  Sex: Male
  Weight: 69 kg

DRUGS (6)
  1. XARELTO [Suspect]
     Indication: PULMONARY EMBOLISM
     Route: 048
     Dates: start: 20130724, end: 20130731
  2. CYCLIZINE [Concomitant]
     Route: 065
  3. BUMETANIDE [Concomitant]
     Route: 065
  4. DORZOLAMIDE [Concomitant]
     Route: 065
  5. LATANOPROST [Concomitant]
     Route: 065
  6. CANDESARTAN [Concomitant]
     Route: 065

REACTIONS (4)
  - Nausea [Recovered/Resolved]
  - Dizziness [Recovered/Resolved]
  - Vomiting [Recovered/Resolved]
  - Malaise [Unknown]
